FAERS Safety Report 7178453-8 (Version None)
Quarter: 2010Q4

REPORT INFORMATION
  Report Type: 
  Country: None (occurrence: None)
  Receive Date: 20101220
  Receipt Date: 20101214
  Transmission Date: 20110411
  Serious: Yes (Hospitalization)
  Sender: FDA-Public Use
  Company Number: TR-ABBOTT-10P-161-0691419-00

PATIENT
  Age: 50 Year
  Sex: Male

DRUGS (5)
  1. DEPAKENE [Suspect]
     Indication: MYOCLONIC EPILEPSY
     Route: 048
     Dates: start: 19920101
  2. NIFEDIPINE [Interacting]
     Indication: HYPERTENSION
  3. AMLODIPINE [Interacting]
     Indication: HYPERTENSION
  4. OLMESARTAN MEDOXOMIL [Interacting]
     Indication: HYPERTENSION
  5. CARVEDILOL [Interacting]
     Indication: HYPERTENSION

REACTIONS (2)
  - CONVULSION [None]
  - DRUG INTERACTION [None]
